FAERS Safety Report 5713603-9 (Version None)
Quarter: 2008Q2

REPORT INFORMATION
  Report Type: 
  Country: None (occurrence: None)
  Receive Date: 20080422
  Receipt Date: 20080410
  Transmission Date: 20081010
  Serious: Yes (Death, Other)
  Sender: FDA-Public Use
  Company Number: US-ELI_LILLY_AND_COMPANY-US200712004478

PATIENT
  Age: 52 Year
  Sex: Female

DRUGS (4)
  1. CYMBALTA [Suspect]
     Indication: DEPRESSION
     Dosage: 90 MG, DAILY (1/D)
     Dates: start: 20060101, end: 20071129
  2. CYMBALTA [Suspect]
     Dosage: 120 MG, UNK
     Route: 048
  3. OXYCONTIN [Concomitant]
     Indication: PAIN
  4. KLONOPIN [Concomitant]

REACTIONS (5)
  - CARDIAC ARREST [None]
  - DEATH [None]
  - DIZZINESS [None]
  - OEDEMA [None]
  - WEIGHT INCREASED [None]
